FAERS Safety Report 9306628 (Version 1)
Quarter: 2013Q2

REPORT INFORMATION
  Report Type: Spontaneous
  Country: US (occurrence: US)
  Receive Date: 20130523
  Receipt Date: 20130523
  Transmission Date: 20140414
  Serious: No
  Sender: FDA-Public Use
  Company Number: US-TARO-2013P1000190

PATIENT
  Sex: Female

DRUGS (2)
  1. TERCONAZOLE VAGINAL CREAM 0.8% [Suspect]
     Indication: FUNGAL INFECTION
     Route: 067
     Dates: start: 20130103, end: 20130105
  2. TERCONAZOLE VAGINAL CREAM 0.8% [Suspect]
     Indication: FUNGAL INFECTION
     Route: 067
     Dates: start: 201212, end: 201212

REACTIONS (3)
  - Drug ineffective [Not Recovered/Not Resolved]
  - Exposure during pregnancy [Not Recovered/Not Resolved]
  - Influenza [Recovered/Resolved]
